FAERS Safety Report 23630062 (Version 4)
Quarter: 2024Q2

REPORT INFORMATION
  Report Type: Spontaneous
  Country: BE (occurrence: BE)
  Receive Date: 20240314
  Receipt Date: 20240627
  Transmission Date: 20240715
  Serious: Yes (Other)
  Sender: FDA-Public Use
  Company Number: BE-NOVOPROD-1186975

PATIENT
  Age: 53 Year
  Sex: Female
  Weight: 92.4 kg

DRUGS (12)
  1. OZEMPIC [Suspect]
     Active Substance: SEMAGLUTIDE
     Indication: Overweight
     Dosage: QUICKLY TITRATED TO 1MG (3 MONTHS)
     Dates: end: 20230318
  2. OZEMPIC [Suspect]
     Active Substance: SEMAGLUTIDE
     Indication: Food craving
     Dosage: UNK
     Dates: start: 201908
  3. OZEMPIC [Suspect]
     Active Substance: SEMAGLUTIDE
     Indication: Food craving
     Dosage: 1 MG
     Dates: end: 20230318
  4. OZEMPIC [Suspect]
     Active Substance: SEMAGLUTIDE
     Indication: Overweight
  5. EBASTINE [Concomitant]
     Active Substance: EBASTINE
     Indication: Pruritus
     Dosage: 20 MG
  6. PANTOPRAZOLE [Concomitant]
     Active Substance: PANTOPRAZOLE
     Indication: Product used for unknown indication
     Dosage: UNK
  7. SERETIDE [Concomitant]
     Active Substance: FLUTICASONE PROPIONATE\SALMETEROL XINAFOATE
     Indication: Product used for unknown indication
     Dosage: 50/100
  8. ESCITALOPRAM OXALATE [Concomitant]
     Active Substance: ESCITALOPRAM OXALATE
     Indication: Product used for unknown indication
     Dosage: 10 MG, 1/D, 8H
  9. SUMATRIPTAN [Concomitant]
     Active Substance: SUMATRIPTAN
     Indication: Migraine
     Dosage: WHEN NEEDED (100 MG)
  10. LEVOTHYROXINE [Concomitant]
     Active Substance: LEVOTHYROXINE\LEVOTHYROXINE SODIUM
     Dosage: 125 MG, QOD (1 TIME EVERY 2 DAYS, 7 HOURS)
     Dates: start: 20230504
  11. LEVOTHYROXINE [Concomitant]
     Active Substance: LEVOTHYROXINE\LEVOTHYROXINE SODIUM
     Dosage: 150 MG, QOD (1 TIME EVERY 2 DAYS)
     Dates: start: 20230504
  12. BUPROPION HYDROCHLORIDE\NALTREXONE HYDROCHLORIDE [Concomitant]
     Active Substance: BUPROPION HYDROCHLORIDE\NALTREXONE HYDROCHLORIDE
     Dosage: BID,  8AM 6PM
     Dates: start: 20230516

REACTIONS (10)
  - Medullary thyroid cancer [Recovering/Resolving]
  - Carpal tunnel decompression [Unknown]
  - Hypoparathyroidism [Unknown]
  - Blood calcitonin increased [Recovering/Resolving]
  - Gastric perforation [Unknown]
  - Off label use [Recovering/Resolving]
  - Bankart lesion [Unknown]
  - Intervertebral disc injury [Unknown]
  - Rotator cuff syndrome [Unknown]
  - Spinal osteoarthritis [Not Recovered/Not Resolved]

NARRATIVE: CASE EVENT DATE: 20190801
